FAERS Safety Report 6511399-4 (Version None)
Quarter: 2009Q4

REPORT INFORMATION
  Report Type: 
  Country: None (occurrence: None)
  Receive Date: 20091222
  Receipt Date: 20090311
  Transmission Date: 20100525
  Serious: No
  Sender: FDA-Public Use
  Company Number: US-ASTRAZENECA-2009UW06391

PATIENT
  Age: 45 Year
  Sex: Female
  Weight: 82.6 kg

DRUGS (9)
  1. CRESTOR [Suspect]
     Route: 048
  2. PREVACID [Concomitant]
  3. SINGULAIR [Concomitant]
  4. AZAR [Concomitant]
  5. XYZAL [Concomitant]
  6. COENZYME 10 [Concomitant]
  7. LYRICA [Concomitant]
  8. ALBUTEROL [Concomitant]
  9. MOTRIN [Concomitant]

REACTIONS (1)
  - BACK PAIN [None]
